FAERS Safety Report 14679761 (Version 2)
Quarter: 2018Q2

REPORT INFORMATION
  Report Type: Spontaneous
  Country: US (occurrence: US)
  Receive Date: 20180326
  Receipt Date: 20180420
  Transmission Date: 20180711
  Serious: Yes (Hospitalization, Congenital Anomaly, Other)
  Sender: FDA-Public Use
  Company Number: US-JNJFOC-20180323894

PATIENT

DRUGS (1)
  1. REMICADE [Suspect]
     Active Substance: INFLIXIMAB
     Indication: COLITIS ULCERATIVE
     Dosage: MOTHER^S DOSING
     Route: 064
     Dates: start: 20131115

REACTIONS (4)
  - Congenital absence of bile ducts [Unknown]
  - Premature baby [Not Recovered/Not Resolved]
  - Congenital cyst [Unknown]
  - Foetal exposure during pregnancy [Recovered/Resolved]
